FAERS Safety Report 15201189 (Version 4)
Quarter: 2019Q3

REPORT INFORMATION
  Report Type: Spontaneous
  Country: US (occurrence: US)
  Receive Date: 20180726
  Receipt Date: 20190919
  Transmission Date: 20191004
  Serious: Yes (Hospitalization, Other)
  Sender: FDA-Public Use
  Company Number: US-PFIZER INC-2018300447

PATIENT
  Age: 52 Year
  Sex: Female

DRUGS (1)
  1. LYRICA [Suspect]
     Active Substance: PREGABALIN
     Indication: BACK PAIN
     Dosage: 150 MG, 2X/DAY
     Dates: start: 201407

REACTIONS (6)
  - Tremor [Unknown]
  - Muscle twitching [Unknown]
  - Aphasia [Unknown]
  - Hallucination [Unknown]
  - Disorientation [Unknown]
  - Amnesia [Recovered/Resolved]
